FAERS Safety Report 21500010 (Version 3)
Quarter: 2022Q4

REPORT INFORMATION
  Report Type: Spontaneous
  Country: CA (occurrence: CA)
  Receive Date: 20221024
  Receipt Date: 20221221
  Transmission Date: 20230113
  Serious: Yes (Other)
  Sender: FDA-Public Use
  Company Number: CA-PFIZER INC-PV202200059278

PATIENT
  Age: 53 Year
  Sex: Female
  Weight: 62.7 kg

DRUGS (5)
  1. IBRANCE [Suspect]
     Active Substance: PALBOCICLIB
     Indication: Breast cancer
     Dosage: 125 MG, 21 DAYS ON/ 7 DAYS OFF
     Route: 048
  2. IBRANCE [Suspect]
     Active Substance: PALBOCICLIB
     Dosage: 125 MG
     Route: 048
     Dates: start: 20220411
  3. IBRANCE [Suspect]
     Active Substance: PALBOCICLIB
     Dosage: 100 MG TABLET BY MOUTH DAILY X 21 DAYS/ THEN STOP FOR 7 DAYS, CYCLIC
     Route: 048
     Dates: start: 2022
  4. LETROZOLE [Concomitant]
     Active Substance: LETROZOLE
     Dosage: 2.5 MG, TABLET BY MOUTH DAILY
     Route: 048
  5. LETROZOLE [Concomitant]
     Active Substance: LETROZOLE
     Dosage: UNK, CYCLE: DAY 1, CYCLE 9 (CYCLIC)
     Dates: start: 2022

REACTIONS (3)
  - Arrhythmia [Unknown]
  - Weight decreased [Unknown]
  - Body surface area decreased [Unknown]

NARRATIVE: CASE EVENT DATE: 20220101
